FAERS Safety Report 4897632-3 (Version None)
Quarter: 2006Q1

REPORT INFORMATION
  Report Type: 
  Country: None (occurrence: None)
  Receive Date: 20060201
  Receipt Date: 20060123
  Transmission Date: 20060701
  Serious: No
  Sender: FDA-Public Use
  Company Number: US-RB-2706-2006

PATIENT
  Age: 20 Year
  Sex: Male

DRUGS (1)
  1. SUBOXONE [Suspect]

REACTIONS (2)
  - DRUG ABUSER [None]
  - NO ADVERSE EFFECT [None]
